FAERS Safety Report 18451899 (Version 1)
Quarter: 2020Q4

REPORT INFORMATION
  Report Type: Spontaneous
  Country: US (occurrence: US)
  Receive Date: 20201030
  Receipt Date: 20201030
  Transmission Date: 20210114
  Serious: Yes (Other)
  Sender: FDA-Public Use
  Company Number: None

PATIENT
  Age: 58 Year
  Sex: Male
  Weight: 80.4 kg

DRUGS (1)
  1. CHLORHEXIDINE [Suspect]
     Active Substance: CHLORHEXIDINE
     Indication: ENDOTRACHEAL INTUBATION
     Dosage: ?          OTHER ROUTE:TOPICAL ORAL?
     Route: 061
     Dates: start: 20200922, end: 20201023

REACTIONS (2)
  - Product contamination microbial [None]
  - Burkholderia test positive [None]

NARRATIVE: CASE EVENT DATE: 20201010
